FAERS Safety Report 14856792 (Version 1)
Quarter: 2018Q2

REPORT INFORMATION
  Report Type: Spontaneous
  Country: US (occurrence: US)
  Receive Date: 20180507
  Receipt Date: 20180507
  Transmission Date: 20180711
  Serious: No
  Sender: FDA-Public Use
  Company Number: US-ROCHE-2052301

PATIENT
  Sex: Female

DRUGS (13)
  1. EZETIMIBE. [Concomitant]
     Active Substance: EZETIMIBE
  2. FENOFIBRIC ACID. [Concomitant]
     Active Substance: FENOFIBRIC ACID
  3. METOPROLOL TARTRATE. [Concomitant]
     Active Substance: METOPROLOL TARTRATE
  4. ACETAMINOPHEN/HYDROCODONE [Concomitant]
     Active Substance: ACETAMINOPHEN\HYDROCODONE
  5. SIMVASTATIN. [Concomitant]
     Active Substance: SIMVASTATIN
  6. ESBRIET [Suspect]
     Active Substance: PIRFENIDONE
     Indication: IDIOPATHIC PULMONARY FIBROSIS
     Dosage: 3 TAB 3 TIMES A DAY WITH MEALS
     Route: 048
     Dates: start: 20171014
  7. ALPRAZOLAM. [Concomitant]
     Active Substance: ALPRAZOLAM
  8. GABAPENTIN. [Concomitant]
     Active Substance: GABAPENTIN
  9. OMEPRAZOLE. [Concomitant]
     Active Substance: OMEPRAZOLE
  10. SUDAFED PE NASAL DECONGESTANT [Concomitant]
  11. ASPIRIN. [Concomitant]
     Active Substance: ASPIRIN
  12. TYLENOL [Concomitant]
     Active Substance: ACETAMINOPHEN
  13. BENADRYL [Concomitant]
     Active Substance: DIPHENHYDRAMINE HYDROCHLORIDE

REACTIONS (1)
  - Fatigue [Unknown]
